FAERS Safety Report 6905857-8 (Version None)
Quarter: 2010Q3

REPORT INFORMATION
  Report Type: 
  Country: None (occurrence: None)
  Receive Date: 20100804
  Receipt Date: 20100722
  Transmission Date: 20110219
  Serious: Yes (Death, Hospitalization, Other)
  Sender: FDA-Public Use
  Company Number: US-ELI_LILLY_AND_COMPANY-US201007003202

PATIENT
  Sex: Male

DRUGS (2)
  1. ZYPREXA RELPREVV [Suspect]
     Dosage: 405 MG, OTHER
     Dates: start: 20100604
  2. HALDOL [Concomitant]
     Indication: SCHIZOPHRENIA

REACTIONS (5)
  - BRAIN DEATH [None]
  - NEUROLEPTIC MALIGNANT SYNDROME [None]
  - OBSTRUCTIVE AIRWAYS DISORDER [None]
  - PYREXIA [None]
  - SWOLLEN TONGUE [None]
